FAERS Safety Report 8098439-9 (Version None)
Quarter: 2012Q1

REPORT INFORMATION
  Report Type: 
  Country: None (occurrence: None)
  Receive Date: 20120131
  Receipt Date: 20120118
  Transmission Date: 20120608
  Serious: Yes (Hospitalization)
  Sender: FDA-Public Use
  Company Number: DE-ELI_LILLY_AND_COMPANY-DE201201005099

PATIENT
  Sex: Female

DRUGS (10)
  1. ENALAPRIL [Concomitant]
     Indication: BLOOD PRESSURE
  2. CREON [Concomitant]
     Dosage: 25000 U, UNK
  3. LACTRASE [Concomitant]
  4. CALCIUM [Concomitant]
  5. PANTOPRAZOLE [Concomitant]
  6. VITAMIN D [Concomitant]
  7. FORTEO [Suspect]
     Indication: OSTEOPOROSIS
     Dosage: UNK, QD
     Route: 058
     Dates: start: 20101006
  8. VITAMIN B-12 [Concomitant]
  9. BIOLECTRA                          /01149501/ [Concomitant]
  10. CHOLESTYRAMINE [Concomitant]

REACTIONS (3)
  - HERPES ZOSTER [None]
  - ASTHENIA [None]
  - PAIN [None]
